FAERS Safety Report 21335387 (Version 1)
Quarter: 2022Q3

REPORT INFORMATION
  Report Type: Report from Study
  Country: US (occurrence: US)
  Receive Date: 20220915
  Receipt Date: 20220915
  Transmission Date: 20221027
  Serious: Yes (Other)
  Sender: FDA-Public Use
  Company Number: US-BRISTOL-MYERS SQUIBB COMPANY-2022-103662

PATIENT
  Age: 70 Year
  Sex: Female
  Weight: 47.174 kg

DRUGS (1)
  1. POMALYST [Suspect]
     Active Substance: POMALIDOMIDE
     Indication: Plasma cell myeloma
     Dosage: 21 DAYS ON, 28 DAY CYCLE
     Route: 048
     Dates: start: 20210625

REACTIONS (1)
  - COVID-19 [Unknown]
